FAERS Safety Report 5529173-4 (Version None)
Quarter: 2007Q4

REPORT INFORMATION
  Report Type: 
  Country: None (occurrence: None)
  Receive Date: 20071129
  Receipt Date: 20070604
  Transmission Date: 20080405
  Serious: No
  Sender: FDA-Public Use
  Company Number: A0644875A

PATIENT
  Sex: Female

DRUGS (2)
  1. BUPROPION HCL [Suspect]
     Indication: MOOD SWINGS
     Route: 048
     Dates: start: 20000101
  2. ALLEGRA D 24 HOUR [Concomitant]

REACTIONS (6)
  - ABDOMINAL DISTENSION [None]
  - ABDOMINAL PAIN UPPER [None]
  - ERUCTATION [None]
  - NAUSEA [None]
  - PHARMACEUTICAL PRODUCT COMPLAINT [None]
  - STOMACH DISCOMFORT [None]
